FAERS Safety Report 9952295 (Version 1)
Quarter: 2014Q1

REPORT INFORMATION
  Report Type: Report from Study
  Country: US (occurrence: US)
  Receive Date: 20140304
  Receipt Date: 20140304
  Transmission Date: 20141002
  Serious: No
  Sender: FDA-Public Use
  Company Number: US-ABBVIE-13P-163-1073399-00

PATIENT
  Age: 52 Year
  Sex: Female

DRUGS (14)
  1. HUMIRA [Suspect]
     Indication: COLITIS ULCERATIVE
     Dates: start: 20130211
  2. COLAZAL [Concomitant]
     Indication: PRODUCT USED FOR UNKNOWN INDICATION
     Dosage: 750 MG X 3 TABS THREE TIMES DAILY
  3. WOMEN MULTIVITAMIN [Concomitant]
     Indication: VITAMIN SUPPLEMENTATION
     Dosage: PER DAY
  4. CELEBREX [Concomitant]
     Indication: ARTHRALGIA
     Dosage: 200 MG TAKES 2 AS REQUIRED
  5. PREVACID [Concomitant]
     Indication: GASTROOESOPHAGEAL REFLUX DISEASE
     Dosage: 30MG DAILY
  6. LESSINA [Concomitant]
     Indication: CONTRACEPTION
     Dosage: 28 TABS- ONE PER DAY
  7. PROZAC [Concomitant]
     Indication: DEPRESSION
     Dosage: 40 MG DAILY
  8. XANAX [Concomitant]
     Indication: ANXIETY
     Dosage: 2 MG DAILY
  9. LOMOTIL [Concomitant]
     Indication: DIARRHOEA
     Dosage: 2.5 MG X 2 TABS DAILY
  10. PREDNISONE [Concomitant]
     Indication: PRODUCT USED FOR UNKNOWN INDICATION
     Dosage: WEANING OFF AT THIS TIME
  11. AMBIEN [Concomitant]
     Indication: INSOMNIA
     Dosage: AT BEDTIME
  12. ALLEGRA 24 HOUR [Concomitant]
     Indication: HYPERSENSITIVITY
     Dosage: 180MG DAILY
  13. ALIGN [Concomitant]
     Indication: GASTROINTESTINAL DISORDER
     Dosage: PROBIOTIC DAILY
  14. TYLENOL [Concomitant]
     Indication: PAIN

REACTIONS (2)
  - Injection site swelling [Recovered/Resolved]
  - Injection site pruritus [Recovered/Resolved]
